FAERS Safety Report 22968262 (Version 3)
Quarter: 2023Q4

REPORT INFORMATION
  Report Type: Report from Study
  Country: US (occurrence: US)
  Receive Date: 20230921
  Receipt Date: 20231006
  Transmission Date: 20240109
  Serious: Yes (Other)
  Sender: FDA-Public Use
  Company Number: US-KYOWAKIRIN-2023KK014614

PATIENT

DRUGS (4)
  1. BUROSUMAB [Suspect]
     Active Substance: BUROSUMAB
     Indication: Hereditary hypophosphataemic rickets
     Dosage: 20 MG, 1X/4 WEEKS
     Route: 058
     Dates: start: 20230907
  2. BUROSUMAB [Suspect]
     Active Substance: BUROSUMAB
     Dosage: 80 MG, 1X/4 WEEKS
     Route: 058
  3. BUROSUMAB [Suspect]
     Active Substance: BUROSUMAB
     Indication: Hereditary hypophosphataemic rickets
     Dosage: 60 MG, 1X/4 WEEKS
     Route: 058
     Dates: start: 20230907
  4. BUROSUMAB [Suspect]
     Active Substance: BUROSUMAB
     Dosage: 80 MG, 1X/4 WEEKS
     Route: 058

REACTIONS (13)
  - Muscle rupture [Unknown]
  - Musculoskeletal stiffness [Unknown]
  - Gait inability [Unknown]
  - Muscular weakness [Unknown]
  - Tremor [Unknown]
  - Fall [Unknown]
  - Wheelchair user [Unknown]
  - Lower limb fracture [Unknown]
  - Muscle spasms [Unknown]
  - Pain in extremity [Unknown]
  - Asthenia [Unknown]
  - Pain [Unknown]
  - Muscle spasms [Unknown]

NARRATIVE: CASE EVENT DATE: 20230901
